FAERS Safety Report 14550882 (Version 4)
Quarter: 2018Q2

REPORT INFORMATION
  Report Type: Report from Study
  Country: US (occurrence: US)
  Receive Date: 20180220
  Receipt Date: 20180419
  Transmission Date: 20180711
  Serious: Yes (Hospitalization, Other)
  Sender: FDA-Public Use
  Company Number: US-ROCHE-2077144

PATIENT
  Age: 58 Year
  Sex: Female
  Weight: 88.53 kg

DRUGS (5)
  1. ERIVEDGE [Suspect]
     Active Substance: VISMODEGIB
     Indication: BASAL CELL CARCINOMA
     Route: 048
     Dates: start: 20171230
  2. FLEXERIL [Concomitant]
     Active Substance: CYCLOBENZAPRINE HYDROCHLORIDE
  3. SIMVASTATIN. [Concomitant]
     Active Substance: SIMVASTATIN
  4. ERIVEDGE [Suspect]
     Active Substance: VISMODEGIB
     Route: 048
     Dates: start: 20180101, end: 20180212
  5. TYLENOL [Concomitant]
     Active Substance: ACETAMINOPHEN

REACTIONS (11)
  - Liver function test increased [Unknown]
  - Diarrhoea [Recovering/Resolving]
  - Anxiety [Unknown]
  - Palpitations [Unknown]
  - Liver injury [Unknown]
  - Stress [Unknown]
  - Malaise [Unknown]
  - Muscle spasms [Unknown]
  - Hepatotoxicity [Recovering/Resolving]
  - Memory impairment [Unknown]
  - Vomiting [Recovered/Resolved]

NARRATIVE: CASE EVENT DATE: 20180201
